FAERS Safety Report 12983375 (Version 1)
Quarter: 2016Q4

REPORT INFORMATION
  Report Type: Spontaneous
  Country: IT (occurrence: IT)
  Receive Date: 20161129
  Receipt Date: 20161129
  Transmission Date: 20170207
  Serious: Yes (Other)
  Sender: FDA-Public Use
  Company Number: IT-FRESENIUS KABI-FK201609119

PATIENT
  Age: 24 Year
  Sex: Female

DRUGS (1)
  1. MITOXANTRONE [Suspect]
     Active Substance: MITOXANTRONE HYDROCHLORIDE
     Indication: MULTIPLE SCLEROSIS
     Route: 065
     Dates: start: 201307, end: 20140324

REACTIONS (2)
  - Amniotic fluid volume decreased [Recovered/Resolved]
  - Foetal exposure during pregnancy [Recovered/Resolved]
